FAERS Safety Report 19640051 (Version 3)
Quarter: 2022Q1

REPORT INFORMATION
  Report Type: Spontaneous
  Country: US (occurrence: US)
  Receive Date: 20210730
  Receipt Date: 20220221
  Transmission Date: 20220423
  Serious: Yes (Other)
  Sender: FDA-Public Use
  Company Number: US-GILEAD-2021-0542435

PATIENT
  Sex: Female
  Weight: 81.633 kg

DRUGS (23)
  1. VIREAD [Suspect]
     Active Substance: TENOFOVIR DISOPROXIL FUMARATE
     Indication: HIV infection
     Dosage: UNK
     Route: 048
     Dates: start: 2002, end: 2008
  2. TRUVADA [Suspect]
     Active Substance: EMTRICITABINE\TENOFOVIR DISOPROXIL FUMARATE
     Indication: HIV infection
     Dosage: UNK
     Route: 048
     Dates: start: 2002
  3. TRUVADA [Suspect]
     Active Substance: EMTRICITABINE\TENOFOVIR DISOPROXIL FUMARATE
     Dosage: UNK
     Route: 048
     Dates: start: 2008, end: 2015
  4. COMBIVIR [Concomitant]
     Active Substance: LAMIVUDINE\ZIDOVUDINE
  5. CRIXIVAN [Concomitant]
     Active Substance: INDINAVIR SULFATE
  6. EMTRIVA [Concomitant]
     Active Substance: EMTRICITABINE
  7. FUZEON [Concomitant]
     Active Substance: ENFUVIRTIDE
  8. NORVIR [Concomitant]
     Active Substance: RITONAVIR
  9. RESCRIPTOR [Concomitant]
     Active Substance: DELAVIRDINE MESYLATE
  10. RETROVIR [Concomitant]
     Active Substance: ZIDOVUDINE
  11. REYATAZ [Concomitant]
     Active Substance: ATAZANAVIR SULFATE
  12. SUSTIVA [Concomitant]
     Active Substance: EFAVIRENZ
  13. TRIUMEQ [Concomitant]
     Active Substance: ABACAVIR SULFATE\DOLUTEGRAVIR SODIUM\LAMIVUDINE
  14. VIDEX [Concomitant]
     Active Substance: DIDANOSINE
  15. VIRAMUNE [Concomitant]
     Active Substance: NEVIRAPINE
  16. ZERIT [Concomitant]
     Active Substance: STAVUDINE
  17. FERROUS SULFATE [Concomitant]
     Active Substance: FERROUS SULFATE
  18. BRILINTA [Concomitant]
     Active Substance: TICAGRELOR
  19. ATORVASTATIN [Concomitant]
     Active Substance: ATORVASTATIN
  20. LISINOPRIL [Concomitant]
     Active Substance: LISINOPRIL
  21. SUCRALFATE [Concomitant]
     Active Substance: SUCRALFATE
  22. PANTOPRAZOLE [Concomitant]
     Active Substance: PANTOPRAZOLE
  23. MONTELUKAST [Concomitant]
     Active Substance: MONTELUKAST SODIUM

REACTIONS (11)
  - Osteoporosis [Not Recovered/Not Resolved]
  - Renal impairment [Not Recovered/Not Resolved]
  - Anxiety [Not Recovered/Not Resolved]
  - Emotional distress [Not Recovered/Not Resolved]
  - Anhedonia [Not Recovered/Not Resolved]
  - Pain [Not Recovered/Not Resolved]
  - Bone density decreased [Not Recovered/Not Resolved]
  - Gait disturbance [Not Recovered/Not Resolved]
  - Muscular weakness [Not Recovered/Not Resolved]
  - Bone pain [Unknown]
  - Exercise tolerance decreased [Not Recovered/Not Resolved]

NARRATIVE: CASE EVENT DATE: 20050101
